FAERS Safety Report 11120419 (Version 2)
Quarter: 2015Q3

REPORT INFORMATION
  Report Type: Spontaneous
  Country: US (occurrence: US)
  Receive Date: 20150518
  Receipt Date: 20150701
  Transmission Date: 20151125
  Serious: Yes (Death, Hospitalization, Other)
  Sender: FDA-Public Use
  Company Number: US-GILEAD-2015-0154096

PATIENT
  Age: 60 Year
  Sex: Male
  Weight: 61 kg

DRUGS (21)
  1. CERAMIDE [Concomitant]
  2. ZANTAC [Concomitant]
     Active Substance: RANITIDINE HYDROCHLORIDE
     Indication: EROSIVE OESOPHAGITIS
     Dosage: 150 MG, BID
     Route: 048
  3. HARVONI [Suspect]
     Active Substance: LEDIPASVIR\SOFOSBUVIR
     Indication: HEPATITIS C
     Dosage: 1 DF, QD
     Route: 048
     Dates: end: 20150419
  4. ISENTRESS [Concomitant]
     Active Substance: RALTEGRAVIR POTASSIUM
  5. ZANTAC [Concomitant]
     Active Substance: RANITIDINE HYDROCHLORIDE
     Indication: GASTROOESOPHAGEAL REFLUX DISEASE
  6. TOPROL XL [Concomitant]
     Active Substance: METOPROLOL SUCCINATE
  7. BENZACLIN [Concomitant]
     Active Substance: BENZOYL PEROXIDE\CLINDAMYCIN PHOSPHATE
  8. IMURAN [Concomitant]
     Active Substance: AZATHIOPRINE
     Indication: PROPHYLAXIS AGAINST TRANSPLANT REJECTION
  9. LAC-HYDRIN [Concomitant]
     Active Substance: AMMONIUM LACTATE
  10. BUTALBITAL W/CAFFEINE/PARACETAMOL [Concomitant]
     Active Substance: CAFFEINE
     Indication: HEADACHE
  11. BIOTENE DRY MOUTH [Concomitant]
  12. ZIAGEN [Concomitant]
     Active Substance: ABACAVIR SULFATE
  13. NIZORAL [Concomitant]
     Active Substance: KETOCONAZOLE
  14. EPIVIR [Concomitant]
     Active Substance: LAMIVUDINE
  15. NORVASC [Concomitant]
     Active Substance: AMLODIPINE BESYLATE
  16. HYDROCORTISONE. [Concomitant]
     Active Substance: HYDROCORTISONE
  17. ACLOVATE [Concomitant]
     Active Substance: ALCLOMETASONE DIPROPIONATE
  18. NEORAL [Concomitant]
     Active Substance: CYCLOSPORINE
     Indication: PROPHYLAXIS AGAINST TRANSPLANT REJECTION
  19. MICROZIDE                          /00022001/ [Concomitant]
  20. LOPROX [Concomitant]
     Active Substance: CICLOPIROX\CICLOPIROX OLAMINE
  21. CATAPRES                           /00171101/ [Concomitant]
     Active Substance: CLONIDINE

REACTIONS (3)
  - Chronic kidney disease [Fatal]
  - Hepatic encephalopathy [Unknown]
  - Ascites [Unknown]

NARRATIVE: CASE EVENT DATE: 20150313
